FAERS Safety Report 13493775 (Version 1)
Quarter: 2017Q2

REPORT INFORMATION
  Report Type: Report from Study
  Country: None (occurrence: RO)
  Receive Date: 20170427
  Receipt Date: 20170427
  Transmission Date: 20170830
  Serious: Yes (Death)
  Sender: FDA-Public Use
  Company Number: RO-ABBVIE-17K-135-1955185-00

PATIENT
  Age: 73 Year
  Sex: Male

DRUGS (7)
  1. DUODOPA [Suspect]
     Active Substance: CARBIDOPA\LEVODOPA
     Indication: PARKINSON^S DISEASE
     Dosage: 7ML/3.2ML/1.5ML/24H
     Route: 050
     Dates: start: 20160226, end: 20170425
  2. GABAPENTIN. [Concomitant]
     Active Substance: GABAPENTIN
     Indication: ACUTE MOTOR AXONAL NEUROPATHY
     Route: 048
     Dates: start: 2014, end: 20170425
  3. DIUREX [Concomitant]
     Active Substance: AMILORIDE HYDROCHLORIDE\HYDROCHLOROTHIAZIDE
     Indication: BUNDLE BRANCH BLOCK RIGHT
     Route: 048
     Dates: start: 2010, end: 20170425
  4. CONTROLOC [Concomitant]
     Active Substance: PANTOPRAZOLE SODIUM
     Indication: CHRONIC GASTRITIS
     Route: 048
     Dates: start: 2014, end: 20170425
  5. GABAPENTIN. [Concomitant]
     Active Substance: GABAPENTIN
     Indication: PERIPHERAL SENSORY NEUROPATHY
  6. BETALOC ZOK [Concomitant]
     Active Substance: METOPROLOL SUCCINATE
     Indication: HYPERTENSION
     Route: 048
     Dates: start: 2010, end: 20170425
  7. EXELON [Concomitant]
     Active Substance: RIVASTIGMINE TARTRATE
     Indication: COGNITIVE DISORDER
     Route: 062
     Dates: start: 2014, end: 20170425

REACTIONS (4)
  - General physical health deterioration [Fatal]
  - Cardiac arrest [Fatal]
  - Apathy [Fatal]
  - Somnolence [Fatal]

NARRATIVE: CASE EVENT DATE: 20170424
